FAERS Safety Report 6585381-5 (Version None)
Quarter: 2010Q1

REPORT INFORMATION
  Report Type: 
  Country: None (occurrence: None)
  Receive Date: 20100216
  Receipt Date: 20100216
  Transmission Date: 20100710
  Serious: Yes (Hospitalization)
  Sender: FDA-Public Use
  Company Number: None

PATIENT
  Sex: Male
  Weight: 97.02 kg

DRUGS (5)
  1. MEMANTINE HCL [Suspect]
     Dosage: 660 MG
  2. DECADRON [Concomitant]
  3. KEPPRA [Concomitant]
  4. NEXIUM [Concomitant]
  5. NORCO [Concomitant]

REACTIONS (1)
  - PULMONARY THROMBOSIS [None]
